FAERS Safety Report 9967774 (Version 1)
Quarter: 2014Q1

REPORT INFORMATION
  Report Type: Spontaneous
  Country: CA (occurrence: CA)
  Receive Date: 20140306
  Receipt Date: 20140306
  Transmission Date: 20141002
  Serious: Yes (Hospitalization)
  Sender: FDA-Public Use
  Company Number: CA-MYLANLABS-2014S1004148

PATIENT
  Age: 7 Year
  Sex: Female

DRUGS (4)
  1. PHENOBARBITAL [Suspect]
     Indication: GRAND MAL CONVULSION
     Dosage: 6 MG/KG/DAY
     Route: 065
  2. VALPROIC ACID [Interacting]
     Indication: GRAND MAL CONVULSION
     Dosage: 55 MG/KG/DAY
     Route: 065
  3. LORAZEPAM [Concomitant]
     Indication: GRAND MAL CONVULSION
     Dosage: AS NEEDED
     Route: 065
  4. GABAPENTIN [Concomitant]
     Indication: GUILLAIN-BARRE SYNDROME
     Route: 065

REACTIONS (3)
  - Ammonia increased [Recovering/Resolving]
  - Depressed level of consciousness [Recovering/Resolving]
  - Drug interaction [Recovering/Resolving]
